FAERS Safety Report 16402134 (Version 1)
Quarter: 2019Q2

REPORT INFORMATION
  Report Type: Spontaneous
  Country: GB (occurrence: GB)
  Receive Date: 20190607
  Receipt Date: 20190607
  Transmission Date: 20190711
  Serious: Yes (Other)
  Sender: FDA-Public Use
  Company Number: PHHY2019GB128916

PATIENT
  Age: 75 Year
  Sex: Female

DRUGS (2)
  1. CO-AMOXICLAV [Suspect]
     Active Substance: AMOXICILLIN\CLAVULANATE POTASSIUM
     Indication: PRODUCT USED FOR UNKNOWN INDICATION
     Dosage: 1.5 G, UNK
     Route: 042
  2. PRILOCAINE [Concomitant]
     Active Substance: PRILOCAINE
     Indication: PRODUCT USED FOR UNKNOWN INDICATION
     Dosage: 2.5 ML, UNK
     Route: 065

REACTIONS (5)
  - Hypotension [Recovering/Resolving]
  - Tachycardia [Recovering/Resolving]
  - Malaise [Recovering/Resolving]
  - Hyporesponsive to stimuli [Recovered/Resolved]
  - Cold sweat [Recovering/Resolving]

NARRATIVE: CASE EVENT DATE: 20181228
